FAERS Safety Report 13521057 (Version 3)
Quarter: 2017Q2

REPORT INFORMATION
  Report Type: Spontaneous
  Country: JP (occurrence: JP)
  Receive Date: 20170508
  Receipt Date: 20170523
  Transmission Date: 20170830
  Serious: Yes (Hospitalization, Other)
  Sender: FDA-Public Use
  Company Number: JP-009507513-1705JPN000127J

PATIENT
  Age: 71 Year
  Sex: Male

DRUGS (1)
  1. INTRON A [Suspect]
     Active Substance: INTERFERON ALFA-2B
     Indication: RENAL CANCER METASTATIC
     Dosage: UNK UNK, QW
     Route: 030
     Dates: start: 20170310, end: 20170428

REACTIONS (7)
  - Renal impairment [Recovering/Resolving]
  - Blood bilirubin increased [Unknown]
  - Platelet count decreased [Unknown]
  - Road traffic accident [Unknown]
  - Alanine aminotransferase increased [Recovering/Resolving]
  - Aspartate aminotransferase increased [Recovering/Resolving]
  - Malaise [Unknown]

NARRATIVE: CASE EVENT DATE: 201704
